FAERS Safety Report 9468119 (Version 1)
Quarter: 2013Q3

REPORT INFORMATION
  Report Type: Spontaneous
  Country: HK (occurrence: HK)
  Receive Date: 20130821
  Receipt Date: 20130821
  Transmission Date: 20140515
  Serious: Yes (Hospitalization, Other)
  Sender: FDA-Public Use
  Company Number: HK-009507513-1308HKG009292

PATIENT
  Sex: Female

DRUGS (2)
  1. FOSAMAX ONCE WEEKLY [Suspect]
     Dosage: UNK, QW
     Route: 048
     Dates: start: 2009
  2. FOSAMAX [Suspect]
     Dosage: UNK, QD
     Route: 048
     Dates: start: 2004, end: 2009

REACTIONS (4)
  - Lower limb fracture [Not Recovered/Not Resolved]
  - Bone swelling [Not Recovered/Not Resolved]
  - Fall [Unknown]
  - Surgery [Unknown]
